FAERS Safety Report 4685176-3 (Version None)
Quarter: 2005Q2

REPORT INFORMATION
  Report Type: 
  Country: None (occurrence: None)
  Receive Date: 20050607
  Receipt Date: 20050602
  Transmission Date: 20051028
  Serious: Yes (Death, Other)
  Sender: FDA-Public Use
  Company Number: 05-06-0967

PATIENT
  Age: 56 Year
  Sex: Male

DRUGS (1)
  1. CLOZAPINE [Suspect]
     Indication: SCHIZOAFFECTIVE DISORDER
     Dosage: 375-450MG QD ORAL
     Route: 048
     Dates: start: 20020801, end: 20050401

REACTIONS (3)
  - COLON CANCER [None]
  - LARGE INTESTINE PERFORATION [None]
  - PERITONITIS [None]
